FAERS Safety Report 19726257 (Version 2)
Quarter: 2021Q3

REPORT INFORMATION
  Report Type: Report from Study
  Country: US (occurrence: US)
  Receive Date: 20210819
  Receipt Date: 20210929
  Transmission Date: 20211014
  Serious: Yes (Hospitalization, Other)
  Sender: FDA-Public Use
  Company Number: US-TAKEDA-2021TUS050634

PATIENT
  Age: 74 Year
  Sex: Female
  Weight: 64 kg

DRUGS (5)
  1. PONATINIB [Suspect]
     Active Substance: PONATINIB
     Dosage: 15 MILLIGRAM, BID
     Route: 065
  2. PONATINIB [Suspect]
     Active Substance: PONATINIB
     Dosage: 45 MILLIGRAM, QD
     Route: 065
     Dates: start: 20210811
  3. METHOTREXATE. [Concomitant]
     Active Substance: METHOTREXATE
     Indication: CHRONIC MYELOID LEUKAEMIA
     Dosage: UNK
     Route: 065
  4. PONATINIB [Suspect]
     Active Substance: PONATINIB
     Indication: CHRONIC MYELOID LEUKAEMIA (IN REMISSION)
     Dosage: 45 MILLIGRAM, QD
     Route: 065
     Dates: start: 20210804
  5. VINCRISTINE [Concomitant]
     Active Substance: VINCRISTINE
     Indication: CHRONIC MYELOID LEUKAEMIA
     Dosage: UNK
     Route: 065

REACTIONS (5)
  - Asthenia [Recovering/Resolving]
  - Tremor [Unknown]
  - Feeling abnormal [Unknown]
  - Blood pressure decreased [Unknown]
  - Seizure [Unknown]

NARRATIVE: CASE EVENT DATE: 20210808
